FAERS Safety Report 7221275-X (Version None)
Quarter: 2011Q1

REPORT INFORMATION
  Report Type: 
  Country: None (occurrence: None)
  Receive Date: 20110112
  Receipt Date: 20110104
  Transmission Date: 20110831
  Serious: Yes (Life-Threatening)
  Sender: FDA-Public Use
  Company Number: PHHY2010US64912

PATIENT
  Sex: Female

DRUGS (4)
  1. ENABLEX [Suspect]
     Dosage: 15 MG, UNK
     Route: 048
  2. ONE A DAY [Concomitant]
  3. VITAMIN D [Concomitant]
  4. ENABLEX [Suspect]
     Dosage: 7.5 MG, UNK
     Route: 048
     Dates: start: 20100402, end: 20100723

REACTIONS (9)
  - DIZZINESS [None]
  - HYPOTENSION [None]
  - PARAESTHESIA ORAL [None]
  - HYPERTENSIVE CRISIS [None]
  - CONSTIPATION [None]
  - BLOOD PRESSURE INCREASED [None]
  - COUGH [None]
  - LOSS OF CONSCIOUSNESS [None]
  - DYSPEPSIA [None]
